FAERS Safety Report 10110994 (Version 3)
Quarter: 2014Q2

REPORT INFORMATION
  Report Type: Spontaneous
  Country: DE (occurrence: DE)
  Receive Date: 20140425
  Receipt Date: 20140530
  Transmission Date: 20141212
  Serious: Yes (Life-Threatening, Other)
  Sender: FDA-Public Use
  Company Number: DE-BAXTER-2014BAX019413

PATIENT
  Age: 38 Year
  Sex: Female
  Weight: 61 kg

DRUGS (57)
  1. EXTRANEAL [Suspect]
     Indication: PERITONEAL DIALYSIS
     Route: 033
     Dates: start: 20020317, end: 20130307
  2. EXTRANEAL [Suspect]
     Indication: PERITONEAL DIALYSIS
  3. NUTRINEAL PD4 MIT 1,1% AMINOS?UREN [Suspect]
     Indication: PERITONEAL DIALYSIS
     Route: 033
  4. PHYSIONEAL 40 GLUCOSE 1,36 % W/V 13,6 MG/ML PERITONEALDIALYSEL?SUNG [Suspect]
     Indication: PERITONEAL DIALYSIS
     Route: 033
     Dates: start: 20020317, end: 20130307
  5. PHYSIONEAL 40 GLUCOSE 1,36 % W/V 13,6 MG/ML PERITONEALDIALYSEL?SUNG [Suspect]
     Indication: PERITONEAL DIALYSIS
  6. PHYSIONEAL 40 GLUCOSE 2,27 % W/V 22,7 MG/ML PERITONEALDIALYSEL?SUNG [Suspect]
     Indication: PERITONEAL DIALYSIS
     Route: 033
     Dates: start: 20020317, end: 20130307
  7. PHYSIONEAL 40 GLUCOSE 2,27 % W/V 22,7 MG/ML PERITONEALDIALYSEL?SUNG [Suspect]
     Indication: PERITONEAL DIALYSIS
  8. PHYSIONEAL 40 GLUCOSE 3,86 % W/V 38,6 MG/ML PERITONEALDIALYSEL?SUNG [Suspect]
     Indication: PERITONEAL DIALYSIS
     Route: 033
     Dates: start: 20020307, end: 20130317
  9. PHYSIONEAL 40 GLUCOSE 3,86 % W/V 38,6 MG/ML PERITONEALDIALYSEL?SUNG [Suspect]
     Indication: PERITONEAL DIALYSIS
  10. CELLCEPT [Suspect]
     Indication: PRODUCT USED FOR UNKNOWN INDICATION
  11. CELLCEPT [Suspect]
  12. CYCLOSPORIN A [Concomitant]
     Indication: IMMUNOSUPPRESSION
     Dates: start: 20130508
  13. GLUCOCORTICOIDS [Concomitant]
     Indication: IMMUNOSUPPRESSION
     Dates: start: 20130508
  14. COTRIMOXAZOL [Concomitant]
     Indication: ANTIFUNGAL PROPHYLAXIS
  15. VALCYTE [Concomitant]
     Indication: ANTIVIRAL PROPHYLAXIS
  16. TACROLIMUS [Concomitant]
     Indication: IMMUNOSUPPRESSANT DRUG THERAPY
  17. CORTISON [Concomitant]
     Indication: IMMUNOSUPPRESSANT DRUG THERAPY
     Dates: start: 20130607
  18. CORTISON [Concomitant]
     Indication: ADRENOCORTICAL STEROID THERAPY
     Dates: start: 20130607
  19. CORTISON [Concomitant]
     Dates: start: 20130607
  20. CORTISON [Concomitant]
     Dates: start: 20130607
  21. PROGRAF [Concomitant]
     Indication: PRODUCT USED FOR UNKNOWN INDICATION
  22. PREDNISOLON [Concomitant]
     Indication: PRODUCT USED FOR UNKNOWN INDICATION
  23. PANTOZOL [Concomitant]
     Indication: PRODUCT USED FOR UNKNOWN INDICATION
  24. ARANESP [Concomitant]
     Indication: PRODUCT USED FOR UNKNOWN INDICATION
  25. ARANESP [Concomitant]
  26. LANTUS [Concomitant]
     Indication: PRODUCT USED FOR UNKNOWN INDICATION
     Dosage: 100 IU/ML
  27. LANTUS [Concomitant]
  28. LANTUS [Concomitant]
  29. VOTUM [Concomitant]
     Indication: PRODUCT USED FOR UNKNOWN INDICATION
  30. DEKRISTOL [Concomitant]
     Indication: PRODUCT USED FOR UNKNOWN INDICATION
  31. DEKRISTOL [Concomitant]
  32. PHYSIOTENS [Concomitant]
     Indication: BLOOD PRESSURE MANAGEMENT
  33. PHYSIOTENS [Concomitant]
  34. MOXONIDIN [Concomitant]
     Indication: PRODUCT USED FOR UNKNOWN INDICATION
  35. MOXONIDIN [Concomitant]
  36. CALCIVIT D [Concomitant]
     Indication: PRODUCT USED FOR UNKNOWN INDICATION
     Dosage: 400 IU
  37. CALCIVIT D [Concomitant]
     Dosage: 1-0-0
  38. SIMULECT [Concomitant]
     Indication: IMMUNOSUPPRESSANT DRUG THERAPY
  39. DOXYCYCLIN [Concomitant]
     Indication: RENAL LYMPHOCELE
  40. VALSARTAN [Concomitant]
     Indication: BLOOD PRESSURE MANAGEMENT
  41. ENALAPRIL [Concomitant]
     Indication: PRODUCT USED FOR UNKNOWN INDICATION
  42. RENAGEL [Concomitant]
     Indication: PRODUCT USED FOR UNKNOWN INDICATION
  43. AMLODIPIN [Concomitant]
     Indication: PRODUCT USED FOR UNKNOWN INDICATION
  44. EBRANTIL [Concomitant]
     Indication: PRODUCT USED FOR UNKNOWN INDICATION
  45. PANTOPRAZOL [Concomitant]
     Indication: PRODUCT USED FOR UNKNOWN INDICATION
  46. HUMINSULIN BASAL [Concomitant]
     Indication: PRODUCT USED FOR UNKNOWN INDICATION
  47. VITARENAL [Concomitant]
     Indication: PRODUCT USED FOR UNKNOWN INDICATION
  48. CALCITRIOL [Concomitant]
     Indication: PRODUCT USED FOR UNKNOWN INDICATION
  49. TORASEMID [Concomitant]
     Indication: PRODUCT USED FOR UNKNOWN INDICATION
  50. BISOPROLOL [Concomitant]
     Indication: PRODUCT USED FOR UNKNOWN INDICATION
  51. BISOPROLOL [Concomitant]
  52. FERRLECIT [Concomitant]
     Indication: PRODUCT USED FOR UNKNOWN INDICATION
  53. FOSRENOL [Concomitant]
     Indication: PRODUCT USED FOR UNKNOWN INDICATION
  54. L-THYROXIN [Concomitant]
     Indication: PRODUCT USED FOR UNKNOWN INDICATION
  55. L-THYROXIN [Concomitant]
  56. ROCALTROL [Concomitant]
     Indication: PRODUCT USED FOR UNKNOWN INDICATION
  57. ACTRAPID [Concomitant]
     Indication: PRODUCT USED FOR UNKNOWN INDICATION
     Dosage: 100 IU/ML

REACTIONS (10)
  - Complications of transplant surgery [Not Recovered/Not Resolved]
  - Sclerosing encapsulating peritonitis [Not Recovered/Not Resolved]
  - Ileus [Recovered/Resolved]
  - Urinary incontinence [Unknown]
  - C-reactive protein increased [Unknown]
  - Anaemia [Unknown]
  - Hyponatraemia [Unknown]
  - Serum ferritin increased [Unknown]
  - Proteinuria [Unknown]
  - Secondary hyperthyroidism [Unknown]
